FAERS Safety Report 4314361-5 (Version None)
Quarter: 2004Q1

REPORT INFORMATION
  Report Type: 
  Country: None (occurrence: None)
  Receive Date: 20040308
  Receipt Date: 20040223
  Transmission Date: 20041129
  Serious: Yes (Other)
  Sender: FDA-Public Use
  Company Number: 2004012240

PATIENT
  Sex: Male

DRUGS (2)
  1. GEODON [Suspect]
     Indication: AGGRESSION
     Dosage: INTRAMUSCULAR
     Route: 030
     Dates: start: 20040101
  2. GEODON [Suspect]
     Indication: AGITATION
     Dosage: INTRAMUSCULAR
     Route: 030
     Dates: start: 20040101

REACTIONS (2)
  - COMA [None]
  - MEDICATION ERROR [None]
